FAERS Safety Report 20484815 (Version 1)
Quarter: 2022Q1

REPORT INFORMATION
  Report Type: Spontaneous
  Country: US (occurrence: US)
  Receive Date: 20220217
  Receipt Date: 20220217
  Transmission Date: 20220423
  Serious: Yes (Other)
  Sender: FDA-Public Use
  Company Number: US-SLATE RUN PHARMACEUTICALS-22US000903

PATIENT

DRUGS (6)
  1. VORICONAZOLE [Suspect]
     Active Substance: VORICONAZOLE
     Indication: Aspergillus infection
     Dosage: UNK
  2. VORICONAZOLE [Suspect]
     Active Substance: VORICONAZOLE
     Indication: Disseminated aspergillosis
  3. CASPOFUNGIN [Concomitant]
     Active Substance: CASPOFUNGIN
     Indication: Aspergillus infection
  4. CASPOFUNGIN [Concomitant]
     Active Substance: CASPOFUNGIN
     Indication: Disseminated aspergillosis
  5. INTERFERON GAMMA [Concomitant]
     Active Substance: INTERFERON GAMMA
     Indication: Immunomodulatory therapy
  6. GRANULOCYTE COLONY-STIMULATING FACTOR NOS [Concomitant]
     Active Substance: GRANULOCYTE COLONY-STIMULATING FACTOR NOS
     Indication: Immunomodulatory therapy

REACTIONS (2)
  - CD4 lymphocytes decreased [Recovered/Resolved]
  - Maternal exposure during pregnancy [Recovered/Resolved]
